FAERS Safety Report 18744771 (Version 3)
Quarter: 2022Q2

REPORT INFORMATION
  Report Type: Other
  Country: US (occurrence: None)
  Receive Date: 20210115
  Receipt Date: 20220502
  Transmission Date: 20220721
  Serious: Yes (Other)
  Sender: FDA-Public Use
  Company Number: US-ROCHE-2750459

PATIENT
  Sex: Female

DRUGS (2)
  1. CELLCEPT [Suspect]
     Active Substance: MYCOPHENOLATE MOFETIL
     Indication: Necrotising fasciitis
     Dosage: 3 TABLETS
     Route: 048
  2. CELLCEPT [Suspect]
     Active Substance: MYCOPHENOLATE MOFETIL
     Indication: Chronic inflammatory demyelinating polyradiculoneuropathy
     Dosage: 500MG 2 TABLETS BID
     Route: 048

REACTIONS (5)
  - Neoplasm malignant [Unknown]
  - Illness [Unknown]
  - Diarrhoea [Unknown]
  - Off label use [Unknown]
  - Diarrhoea [Unknown]
